FAERS Safety Report 14066076 (Version 1)
Quarter: 2017Q4

REPORT INFORMATION
  Report Type: Spontaneous
  Country: US (occurrence: US)
  Receive Date: 20171009
  Receipt Date: 20171009
  Transmission Date: 20180321
  Serious: Yes (Hospitalization)
  Sender: FDA-Public Use
  Company Number: US-JNJFOC-20171007245

PATIENT
  Age: 55 Year
  Sex: Male

DRUGS (1)
  1. IMBRUVICA [Suspect]
     Active Substance: IBRUTINIB
     Indication: PRODUCT USED FOR UNKNOWN INDICATION
     Route: 048
     Dates: start: 20170906, end: 20170926

REACTIONS (4)
  - Blood sodium decreased [Unknown]
  - Blood pressure decreased [Unknown]
  - Dehydration [Unknown]
  - Drug intolerance [Unknown]

NARRATIVE: CASE EVENT DATE: 201709
